FAERS Safety Report 9164396 (Version 1)
Quarter: 2013Q1

REPORT INFORMATION
  Report Type: Spontaneous
  Country: DE (occurrence: None)
  Receive Date: 20130226
  Receipt Date: 20130226
  Transmission Date: 20140127
  Serious: Yes (Other)
  Sender: FDA-Public Use
  Company Number: GER/GER/13/0028183

PATIENT
  Age: 29 Year
  Sex: Female
  Weight: 74 kg

DRUGS (2)
  1. VENLAFAXINE (VENLAFAXINE) [Suspect]
     Indication: DEPRESSION
     Route: 048
  2. FOLSAURE (FOLIC ACID) [Concomitant]

REACTIONS (2)
  - Maternal exposure timing unspecified [None]
  - Caesarean section [None]
